FAERS Safety Report 4822405-7 (Version None)
Quarter: 2005Q4

REPORT INFORMATION
  Report Type: 
  Country: None (occurrence: None)
  Receive Date: 20051104
  Receipt Date: 20051104
  Transmission Date: 20060501
  Serious: Yes (Hospitalization)
  Sender: FDA-Public Use
  Company Number: None

PATIENT
  Age: 46 Year
  Sex: Male
  Weight: 71.2147 kg

DRUGS (2)
  1. VINCRISTINE [Suspect]
     Indication: EPENDYMOMA
     Dosage: 2 MG PER CYCLE IV
     Route: 042
     Dates: start: 20050927, end: 20051011
  2. VINCRISTINE [Suspect]
     Indication: NEOPLASM RECURRENCE
     Dosage: 2 MG PER CYCLE IV
     Route: 042
     Dates: start: 20050927, end: 20051011

REACTIONS (5)
  - INJECTION SITE INFECTION [None]
  - INJECTION SITE PAIN [None]
  - INJECTION SITE REACTION [None]
  - INJECTION SITE SWELLING [None]
  - THROMBOPHLEBITIS [None]
